FAERS Safety Report 20681199 (Version 2)
Quarter: 2022Q3

REPORT INFORMATION
  Report Type: Spontaneous
  Country: US (occurrence: US)
  Receive Date: 20220406
  Receipt Date: 20220701
  Transmission Date: 20221027
  Serious: No
  Sender: FDA-Public Use
  Company Number: US-SANOFI-01042241

PATIENT
  Age: 42 Year
  Sex: Female

DRUGS (1)
  1. DUPIXENT [Suspect]
     Active Substance: DUPILUMAB
     Indication: Dermatitis atopic
     Dosage: UNK UNK, TOTAL
     Route: 058
     Dates: start: 20220225

REACTIONS (6)
  - Skin exfoliation [Unknown]
  - Eczema [Recovering/Resolving]
  - Swelling face [Unknown]
  - Throat tightness [Unknown]
  - Rash [Unknown]
  - Erythema [Unknown]
